FAERS Safety Report 8260210-2 (Version None)
Quarter: 2012Q2

REPORT INFORMATION
  Report Type: 
  Country: None (occurrence: None)
  Receive Date: 20120404
  Receipt Date: 20120322
  Transmission Date: 20120825
  Serious: Yes (Hospitalization)
  Sender: FDA-Public Use
  Company Number: CHPA2012US005681

PATIENT
  Sex: Female

DRUGS (6)
  1. NEXIUM [Concomitant]
     Indication: HIATUS HERNIA
     Dosage: 1 DF, QD
     Route: 048
  2. ANTIHYPERTENSIVES [Concomitant]
     Indication: HYPERTENSION
     Dosage: 10 MG, UNK
     Route: 048
  3. WARFARIN SODIUM [Concomitant]
     Dosage: UNK
     Route: 048
  4. EXCEDRIN EXTRA STRENGTH TABLETS [Suspect]
     Indication: MIGRAINE
     Dosage: 1 DF PER WEEK/EVERY FEW DAYS
     Route: 048
     Dates: end: 20120201
  5. VICODIN [Concomitant]
  6. BISMUTH SUBSALICYLATE [Concomitant]
     Route: 048

REACTIONS (2)
  - UNDERDOSE [None]
  - EPISTAXIS [None]
